FAERS Safety Report 5123664-6 (Version None)
Quarter: 2006Q4

REPORT INFORMATION
  Report Type: 
  Country: None (occurrence: None)
  Receive Date: 20061010
  Receipt Date: 20060926
  Transmission Date: 20070319
  Serious: Yes (Hospitalization)
  Sender: FDA-Public Use
  Company Number: NLWYE038527SEP06

PATIENT
  Age: 20 Year
  Sex: Female

DRUGS (1)
  1. ENBREL [Suspect]
     Indication: DRUG USE FOR UNKNOWN INDICATION
     Dosage: UNKNOWN
     Dates: start: 20010101, end: 20010101

REACTIONS (3)
  - DRUG EXPOSURE DURING PREGNANCY [None]
  - NONSPECIFIC REACTION [None]
  - PREMATURE LABOUR [None]
